FAERS Safety Report 23910176 (Version 1)
Quarter: 2024Q2

REPORT INFORMATION
  Report Type: Spontaneous
  Country: US (occurrence: None)
  Receive Date: 20240524
  Receipt Date: 20240524
  Transmission Date: 20240715
  Serious: No
  Sender: FDA-Public Use
  Company Number: None

PATIENT

DRUGS (2)
  1. SODIUM CHLORIDE [Suspect]
     Active Substance: SODIUM CHLORIDE
     Dosage: INJECTABLE   SINGLE DOSE VIAL ?CONTAINER SIZE  10 MG
     Route: 058
  2. SODIUM PHOSPHATES [Suspect]
     Active Substance: SODIUM PHOSPHATE, DIBASIC, ANHYDROUS\SODIUM PHOSPHATE, DIBASIC, HEPTAHYDRATE\SODIUM PHOSPHATE, MONOB
     Dosage: INJECTABLE  INTRAVENOUS USE, SINGLE DOSE VIAL 5ML
     Route: 058

REACTIONS (3)
  - Product packaging confusion [None]
  - Product name confusion [None]
  - Product label confusion [None]
